FAERS Safety Report 6964507-5 (Version None)
Quarter: 2010Q3

REPORT INFORMATION
  Report Type: 
  Country: None (occurrence: None)
  Receive Date: 20100903
  Receipt Date: 20100826
  Transmission Date: 20110219
  Serious: Yes (Other)
  Sender: FDA-Public Use
  Company Number: JP-PFIZER INC-2010107645

PATIENT
  Age: 65 Year
  Sex: Male

DRUGS (6)
  1. LIPITOR [Suspect]
     Dosage: 10 MG, UNKNOWN/D
     Route: 048
     Dates: start: 20100531
  2. PLETAL [Suspect]
     Dosage: 100 MG, UNKNOWN/D
     Route: 048
     Dates: start: 20100531
  3. ASPIRIN [Concomitant]
     Dosage: UNK
     Route: 048
  4. AMLODIPINE [Concomitant]
     Dosage: UNK
     Route: 048
  5. ARTIST [Concomitant]
     Dosage: UNK
     Route: 048
  6. BENZALIN [Concomitant]
     Dosage: UNK
     Route: 048

REACTIONS (1)
  - CHROMATURIA [None]
